FAERS Safety Report 13662891 (Version 2)
Quarter: 2017Q2

REPORT INFORMATION
  Report Type: Spontaneous
  Country: BE (occurrence: BE)
  Receive Date: 20170619
  Receipt Date: 20170627
  Transmission Date: 20170830
  Serious: Yes (Other)
  Sender: FDA-Public Use
  Company Number: BE-ABBVIE-17K-013-2010438-00

PATIENT
  Age: 74 Year
  Sex: Male

DRUGS (2)
  1. CLOPIDOGREL [Concomitant]
     Active Substance: CLOPIDOGREL BISULFATE
     Indication: TRANSIENT ISCHAEMIC ATTACK
     Dates: start: 2016, end: 2017
  2. HUMIRA [Suspect]
     Active Substance: ADALIMUMAB
     Indication: PSORIASIS
     Route: 058
     Dates: start: 2008

REACTIONS (15)
  - Pulmonary mass [Unknown]
  - Gastric haemangioma [Unknown]
  - Dyspnoea [Unknown]
  - Infarction [Unknown]
  - Chest X-ray abnormal [Unknown]
  - Interstitial lung disease [Unknown]
  - Pain in extremity [Unknown]
  - Helicobacter infection [Unknown]
  - Oesophagitis haemorrhagic [Unknown]
  - Microcytic anaemia [Unknown]
  - Transient ischaemic attack [Unknown]
  - Emphysema [Unknown]
  - Mycobacterium tuberculosis complex test positive [Unknown]
  - Iron deficiency anaemia [Unknown]
  - Gait disturbance [Unknown]

NARRATIVE: CASE EVENT DATE: 20140515
